FAERS Safety Report 10926867 (Version 1)
Quarter: 2015Q1

REPORT INFORMATION
  Report Type: Spontaneous
  Country: US (occurrence: US)
  Receive Date: 20150318
  Receipt Date: 20150318
  Transmission Date: 20150721
  Serious: Yes (Other)
  Sender: FDA-Public Use
  Company Number: US-ASTRAZENECA-2015SE23173

PATIENT
  Sex: Male

DRUGS (6)
  1. WARFARIN [Concomitant]
     Active Substance: WARFARIN
  2. WARFARIN [Concomitant]
     Active Substance: WARFARIN
  3. VITAMIN C [Concomitant]
     Active Substance: ASCORBIC ACID
  4. MULTIVITAMIN [Concomitant]
     Active Substance: VITAMINS
  5. OMEPRAZOLE. [Suspect]
     Active Substance: OMEPRAZOLE
     Route: 065
  6. FLORASTOR [Suspect]
     Active Substance: SACCHAROMYCES CEREVISIAE
     Route: 065

REACTIONS (3)
  - Gastrointestinal stoma complication [Unknown]
  - Faeces discoloured [Unknown]
  - Abnormal faeces [Unknown]
